FAERS Safety Report 25994254 (Version 1)
Quarter: 2025Q4

REPORT INFORMATION
  Report Type: Spontaneous
  Country: EU (occurrence: EU)
  Receive Date: 20251104
  Receipt Date: 20251104
  Transmission Date: 20260117
  Serious: Yes (Other)
  Sender: AUROBINDO
  Company Number: EU-CADRBFARM-2025339285

PATIENT
  Age: 42 Year
  Sex: Female
  Weight: 60 kg

DRUGS (2)
  1. FEXOFENADINE [Suspect]
     Active Substance: FEXOFENADINE HYDROCHLORIDE
     Indication: Hypersensitivity
     Dosage: 1X 180MG
     Route: 048
  2. DIMETHINDENE [Suspect]
     Active Substance: DIMETHINDENE
     Indication: Hypersensitivity
     Dosage: THE TIMEFRAME IS UNFORTUNATELY UNKNOWN, BUT IT HAS OCCURRED MANY TIMES, SO IT IS REPRODUCIBLE.
     Route: 048

REACTIONS (2)
  - Hallucination, visual [Recovered/Resolved]
  - Labelled drug-drug interaction issue [Unknown]
